FAERS Safety Report 6023005-6 (Version None)
Quarter: 2008Q4

REPORT INFORMATION
  Report Type: 
  Country: None (occurrence: None)
  Receive Date: 20081230
  Receipt Date: 20080109
  Transmission Date: 20090506
  Serious: No
  Sender: FDA-Public Use
  Company Number: US-ABBOTT-08P-163-0433222-00

PATIENT
  Sex: Female
  Weight: 21.338 kg

DRUGS (2)
  1. OMNICEF [Suspect]
     Indication: MIDDLE EAR EFFUSION
     Route: 048
     Dates: start: 20080103
  2. OMNICEF [Suspect]
     Indication: PHARYNGITIS

REACTIONS (3)
  - ABNORMAL BEHAVIOUR [None]
  - AGGRESSION [None]
  - MOOD SWINGS [None]
